FAERS Safety Report 8018376-5 (Version None)
Quarter: 2012Q1

REPORT INFORMATION
  Report Type: 
  Country: None (occurrence: None)
  Receive Date: 20120103
  Receipt Date: 20111223
  Transmission Date: 20120608
  Serious: Yes (Hospitalization)
  Sender: FDA-Public Use
  Company Number: US-JNJFOC-20110900106

PATIENT
  Sex: Male
  Weight: 56.6 kg

DRUGS (2)
  1. AZATHIOPRINE [Concomitant]
  2. INFLIXIMAB, RECOMBINANT [Suspect]
     Indication: INFLAMMATORY BOWEL DISEASE
     Route: 042
     Dates: start: 20061003, end: 20080116

REACTIONS (1)
  - PERIRECTAL ABSCESS [None]
